FAERS Safety Report 9713415 (Version 1)
Quarter: 2013Q4

REPORT INFORMATION
  Report Type: Spontaneous
  Country: DE (occurrence: DE)
  Receive Date: 20131126
  Receipt Date: 20131126
  Transmission Date: 20140711
  Serious: Yes (Hospitalization)
  Sender: FDA-Public Use
  Company Number: DE-PFIZER INC-2013332283

PATIENT
  Age: 50 Year
  Sex: Female

DRUGS (3)
  1. VENLAFAXINE HCL [Suspect]
     Dosage: 225 MG, 1X/DAY
     Route: 048
     Dates: start: 2010, end: 20130127
  2. VENLAFAXINE HCL [Suspect]
     Dosage: 300 MG, 1X/DAY
     Route: 048
     Dates: start: 20130128, end: 20130403
  3. VENLAFAXINE HCL [Suspect]
     Dosage: 300 - 75 MG, UNTIL FURTHER NOTICE
     Route: 048
     Dates: start: 20130403

REACTIONS (1)
  - Bipolar I disorder [Recovered/Resolved]
